FAERS Safety Report 5021231-6 (Version None)
Quarter: 2006Q2

REPORT INFORMATION
  Report Type: 
  Country: None (occurrence: None)
  Receive Date: 20060608
  Receipt Date: 20060504
  Transmission Date: 20061013
  Serious: Yes (Disabling)
  Sender: FDA-Public Use
  Company Number: PL-ROCHE-447093

PATIENT
  Age: 64 Year
  Sex: Female

DRUGS (2)
  1. ROFERON-A [Suspect]
     Route: 065
     Dates: start: 20060315
  2. KETONAL [Concomitant]
     Indication: ANALGESIC THERAPY

REACTIONS (1)
  - PARAPARESIS [None]
